FAERS Safety Report 24396161 (Version 1)
Quarter: 2024Q4

REPORT INFORMATION
  Report Type: Spontaneous
  Country: US (occurrence: None)
  Receive Date: 20241003
  Receipt Date: 20241003
  Transmission Date: 20250115
  Serious: No
  Sender: Public
  Company Number: None

PATIENT
  Age: 63 Year
  Sex: Female
  Weight: 74.57 kg

DRUGS (5)
  1. KISQALI [Suspect]
     Active Substance: RIBOCICLIB
     Dosage: FREQUENCY : DAILY;?
     Route: 048
     Dates: start: 202407
  2. CLONAZEPAM [Concomitant]
  3. QUETIAPINE [Concomitant]
  4. SYMBICORT [Concomitant]
     Active Substance: BUDESONIDE\FORMOTEROL FUMARATE DIHYDRATE
  5. TRAZODONE [Concomitant]

REACTIONS (1)
  - Brain fog [None]

NARRATIVE: CASE EVENT DATE: 20240901
